FAERS Safety Report 8967976 (Version 2)
Quarter: 2012Q4

REPORT INFORMATION
  Report Type: 
  Country: US (occurrence: US)
  Receive Date: 20121218
  Receipt Date: 20121227
  Transmission Date: 20130627
  Serious: Yes (Other)
  Sender: FDA-Public Use
  Company Number: US-BRISTOL-MYERS SQUIBB COMPANY-16608135

PATIENT
  Age: 54 Year
  Sex: Female

DRUGS (1)
  1. ORENCIA FOR INJ 250 MG/VIAL [Suspect]
     Dosage: Last inf:22Aug12
     Route: 042

REACTIONS (4)
  - Rotator cuff syndrome [Unknown]
  - Bronchitis [Unknown]
  - Herpes zoster [Unknown]
  - Drug ineffective [Unknown]
